FAERS Safety Report 17733286 (Version 4)
Quarter: 2020Q2

REPORT INFORMATION
  Report Type: Report from Study
  Country: CA (occurrence: CA)
  Receive Date: 20200501
  Receipt Date: 20200618
  Transmission Date: 20200714
  Serious: Yes (Death)
  Sender: FDA-Public Use
  Company Number: CA-ROCHE-2591648

PATIENT
  Age: 31 Year
  Sex: Male
  Weight: 132 kg

DRUGS (23)
  1. LABETALOL [Concomitant]
     Active Substance: LABETALOL\LABETALOL HYDROCHLORIDE
     Indication: HYPERTENSION
     Route: 065
     Dates: start: 20200421, end: 20200423
  2. TRANEXAMIC ACID. [Concomitant]
     Active Substance: TRANEXAMIC ACID
     Indication: HAEMORRHAGE
     Route: 065
     Dates: start: 20200419, end: 20200419
  3. CLONIDINE. [Concomitant]
     Active Substance: CLONIDINE
     Indication: HYPERTENSION
     Route: 065
     Dates: start: 20200417, end: 20200424
  4. LORAZEPAM. [Concomitant]
     Active Substance: LORAZEPAM
     Dosage: FOR SEDATION.
     Route: 065
     Dates: start: 20200417, end: 20200421
  5. TOCILIZUMAB. [Suspect]
     Active Substance: TOCILIZUMAB
     Indication: COVID-19 PNEUMONIA
     Dosage: THIS WAS THE MOST RECENT DOSE OF BLINDED TOCILIZUMAB ADMINISTERED PRIOR TO AE ONSET AT 18:45 HOURS.
     Route: 042
     Dates: start: 20200421
  6. NICOTINE. [Concomitant]
     Active Substance: NICOTINE
     Indication: TOBACCO USER
     Route: 065
     Dates: start: 20200417, end: 20200418
  7. HYDRALAZINE [Concomitant]
     Active Substance: HYDRALAZINE HYDROCHLORIDE
     Indication: HYPERTENSION
     Route: 065
     Dates: start: 20200417, end: 20200424
  8. NOREPINEPHRINE. [Concomitant]
     Active Substance: NOREPINEPHRINE
     Indication: HYPOTENSION
     Route: 065
     Dates: start: 20200423, end: 20200427
  9. FUROSEMIDE. [Concomitant]
     Active Substance: FUROSEMIDE
     Dosage: FOR FLUID OVERLOAD
     Route: 065
     Dates: start: 20200416, end: 20200421
  10. METOPROLOL. [Concomitant]
     Active Substance: METOPROLOL
     Indication: HYPERTENSION
     Route: 065
     Dates: start: 20200418, end: 20200423
  11. SENNA LEAF [Concomitant]
     Active Substance: SENNA LEAF
     Indication: CONSTIPATION
     Route: 065
     Dates: start: 20200417, end: 20200424
  12. QUETIAPINE. [Concomitant]
     Active Substance: QUETIAPINE
     Dosage: FOR SEADTION
     Route: 065
     Dates: start: 20200417, end: 20200424
  13. HYDROMORPHONE [Concomitant]
     Active Substance: HYDROMORPHONE
     Dosage: AS ANALGESIA
     Route: 065
     Dates: start: 20200417, end: 20200424
  14. NIMBEX [Concomitant]
     Active Substance: CISATRACURIUM BESYLATE
     Dosage: AS PARALYTIC AGENT
     Route: 065
     Dates: start: 20200413, end: 20200423
  15. HEPARIN [Concomitant]
     Active Substance: HEPARIN SODIUM
     Dosage: FOR ECLS ANTICOGULATION
     Route: 065
     Dates: start: 20200413, end: 20200427
  16. ROCURONIUM [Concomitant]
     Active Substance: ROCURONIUM BROMIDE
     Indication: PARALYSIS
     Route: 065
     Dates: start: 20200417, end: 20200417
  17. PROPOFOL. [Concomitant]
     Active Substance: PROPOFOL
     Dosage: FOR SEDATION,
     Route: 065
     Dates: start: 20200413, end: 20200425
  18. DEXMEDETOMIDINE. [Concomitant]
     Active Substance: DEXMEDETOMIDINE
     Dosage: FOR SEDATION,
     Route: 065
     Dates: start: 20200417, end: 20200424
  19. PANTOPRAZOLE [Concomitant]
     Active Substance: PANTOPRAZOLE
     Dosage: FOR STRESS ULCER PROPHYLAXIS
     Route: 065
     Dates: start: 20200417, end: 20200426
  20. CLONAZEPAM. [Concomitant]
     Active Substance: CLONAZEPAM
     Route: 065
     Dates: start: 20200423, end: 20200423
  21. FENTANYL. [Concomitant]
     Active Substance: FENTANYL
     Dosage: FOR SEDATION.
     Route: 065
     Dates: start: 20200413, end: 20200417
  22. FENTANYL. [Concomitant]
     Active Substance: FENTANYL
     Route: 065
     Dates: start: 20200424, end: 20200427
  23. HUMULIN R [Concomitant]
     Active Substance: INSULIN HUMAN
     Indication: HYPERGLYCAEMIA
     Route: 065
     Dates: start: 20200413, end: 20200427

REACTIONS (1)
  - Multiple organ dysfunction syndrome [Fatal]

NARRATIVE: CASE EVENT DATE: 20200424
